FAERS Safety Report 4690717-6 (Version None)
Quarter: 2005Q2

REPORT INFORMATION
  Report Type: 
  Country: None (occurrence: None)
  Receive Date: 20050614
  Receipt Date: 20050614
  Transmission Date: 20051028
  Serious: No
  Sender: FDA-Public Use
  Company Number: None

PATIENT
  Sex: Female
  Weight: 71.6683 kg

DRUGS (4)
  1. DOCETAXOL [Suspect]
     Indication: BREAST CANCER
     Dosage: 131 MG IV EVERY 2 WEEKS TIMES 4
     Route: 042
     Dates: start: 20050520
  2. DOCETAXOL [Suspect]
     Indication: BREAST CANCER
     Dosage: 131 MG IV EVERY 2 WEEKS TIMES 4
     Route: 042
     Dates: start: 20050605
  3. RESTORIL [Concomitant]
  4. MULTI-VITAMIN [Concomitant]

REACTIONS (1)
  - NEUROPATHIC PAIN [None]
